FAERS Safety Report 9156509 (Version 1)
Quarter: 2013Q1

REPORT INFORMATION
  Report Type: Spontaneous
  Country: GB (occurrence: None)
  Receive Date: 20130208
  Receipt Date: 20130208
  Transmission Date: 20140127
  Serious: Yes (Hospitalization, Other)
  Sender: FDA-Public Use
  Company Number: 2013P1001670

PATIENT
  Age: 42 Year
  Sex: Female

DRUGS (7)
  1. LITHIUM [Suspect]
     Indication: MAJOR DEPRESSION
     Dates: start: 2009, end: 2009
  2. VENLAFAXINE [Suspect]
     Indication: MAJOR DEPRESSION
     Dates: start: 2009, end: 2009
  3. PHENELZINE [Suspect]
     Indication: MAJOR DEPRESSION
     Dates: end: 2010
  4. LYMECYCLINE [Concomitant]
  5. ZOPICLONE [Concomitant]
  6. LEVOTHYROXINE [Concomitant]
  7. PARACETAMOL [Concomitant]

REACTIONS (1)
  - Serotonin syndrome [None]
